FAERS Safety Report 21047543 (Version 1)
Quarter: 2022Q3

REPORT INFORMATION
  Report Type: Spontaneous
  Country: US (occurrence: None)
  Receive Date: 20220706
  Receipt Date: 20220706
  Transmission Date: 20221027
  Serious: Yes (Death, Hospitalization)
  Sender: FDA-Public Use
  Company Number: None

PATIENT
  Sex: Female
  Weight: 53.5 kg

DRUGS (2)
  1. CISPLATIN [Suspect]
     Active Substance: CISPLATIN
     Dates: end: 20220606
  2. ETOPOSIDE [Suspect]
     Active Substance: ETOPOSIDE
     Dates: end: 20220608

REACTIONS (6)
  - Incontinence [None]
  - Unresponsive to stimuli [None]
  - Hypotension [None]
  - Tachycardia [None]
  - Urinary tract infection bacterial [None]
  - Febrile neutropenia [None]

NARRATIVE: CASE EVENT DATE: 20220614
